FAERS Safety Report 10584611 (Version 1)
Quarter: 2014Q4

REPORT INFORMATION
  Report Type: Spontaneous
  Country: US (occurrence: None)
  Receive Date: 20141113
  Receipt Date: 20141113
  Transmission Date: 20150529
  Serious: No
  Sender: FDA-Public Use
  Company Number: None

PATIENT
  Age: 55 Year

DRUGS (1)
  1. PREDNISOLONE ACETATE. [Suspect]
     Active Substance: PREDNISOLONE ACETATE
     Indication: UVEITIS
     Dosage: ONE DROP BID OPHTHALMIC
     Route: 047
     Dates: start: 20141015, end: 20141108

REACTIONS (1)
  - Vision blurred [None]

NARRATIVE: CASE EVENT DATE: 20141112
